FAERS Safety Report 10092577 (Version 1)
Quarter: 2014Q2

REPORT INFORMATION
  Report Type: Spontaneous
  Country: US (occurrence: US)
  Receive Date: 20140421
  Receipt Date: 20140421
  Transmission Date: 20141212
  Serious: No
  Sender: FDA-Public Use
  Company Number: US-SANOFI-AVENTIS-2013SA041171

PATIENT
  Sex: Female

DRUGS (1)
  1. ALLEGRA [Suspect]
     Indication: SEASONAL ALLERGY
     Dosage: TAKEN FROM- FOR AT LEAST 15 YEARS
     Route: 065

REACTIONS (3)
  - Dehydration [Recovered/Resolved]
  - Constipation [Recovered/Resolved]
  - Unevaluable event [Recovered/Resolved]
